FAERS Safety Report 12918223 (Version 1)
Quarter: 2016Q4

REPORT INFORMATION
  Report Type: Spontaneous
  Country: US (occurrence: US)
  Receive Date: 20161107
  Receipt Date: 20161107
  Transmission Date: 20170207
  Serious: Yes (Other)
  Sender: FDA-Public Use
  Company Number: US-BAYER-2016-206940

PATIENT
  Sex: Male

DRUGS (2)
  1. BAYER LOW DOSE [Suspect]
     Active Substance: ASPIRIN
     Indication: ANTICOAGULANT THERAPY
  2. BAYER LOW DOSE [Suspect]
     Active Substance: ASPIRIN
     Indication: CATARACT
     Dosage: 2 DF, QD
     Route: 048

REACTIONS (1)
  - Rectal haemorrhage [Recovering/Resolving]
